FAERS Safety Report 5677560-6 (Version None)
Quarter: 2008Q1

REPORT INFORMATION
  Report Type: 
  Country: None (occurrence: None)
  Receive Date: 20080324
  Receipt Date: 20080314
  Transmission Date: 20080703
  Serious: Yes (Hospitalization)
  Sender: FDA-Public Use
  Company Number: GB-ROCHE-553411

PATIENT
  Age: 54 Year
  Sex: Female
  Weight: 63.6 kg

DRUGS (3)
  1. CAPECITABINE [Suspect]
     Indication: BREAST CANCER
     Route: 048
     Dates: start: 20080108
  2. EPIRUBICIN [Suspect]
     Indication: BREAST CANCER
     Route: 042
     Dates: start: 20080108
  3. NEULASTA [Suspect]
     Indication: BREAST CANCER
     Route: 042
     Dates: start: 20080108

REACTIONS (3)
  - CHEST PAIN [None]
  - PALPITATIONS [None]
  - TROPONIN T [None]
